FAERS Safety Report 14998841 (Version 1)
Quarter: 2018Q2

REPORT INFORMATION
  Report Type: Report from Study
  Country: None (occurrence: US)
  Receive Date: 20180612
  Receipt Date: 20180612
  Transmission Date: 20180711
  Serious: Yes (Hospitalization)
  Sender: FDA-Public Use
  Company Number: US-ABBVIE-18K-163-2358743-00

PATIENT
  Age: 63 Year
  Sex: Female
  Weight: 106.69 kg

DRUGS (2)
  1. HUMIRA [Suspect]
     Active Substance: ADALIMUMAB
     Indication: PSORIATIC ARTHROPATHY
     Route: 058
     Dates: start: 201803, end: 20180425
  2. HUMIRA [Suspect]
     Active Substance: ADALIMUMAB
     Indication: RHEUMATOID ARTHRITIS

REACTIONS (8)
  - Kidney enlargement [Recovered/Resolved]
  - Wound dehiscence [Recovered/Resolved]
  - Confusional state [Recovered/Resolved]
  - Skin fissures [Recovering/Resolving]
  - Asthenia [Recovered/Resolved]
  - Renal necrosis [Recovering/Resolving]
  - Kidney infection [Recovered/Resolved]
  - Nephritis [Unknown]

NARRATIVE: CASE EVENT DATE: 20180429
